FAERS Safety Report 9395871 (Version 1)
Quarter: 2013Q3

REPORT INFORMATION
  Report Type: Spontaneous
  Country: US (occurrence: US)
  Receive Date: 20130711
  Receipt Date: 20130711
  Transmission Date: 20140515
  Serious: Yes (Death, Life-Threatening, Hospitalization, Disabling)
  Sender: FDA-Public Use
  Company Number: US-GLAXOSMITHKLINE-A1032310A

PATIENT
  Age: 81 Year
  Sex: Female
  Weight: 58 kg

DRUGS (7)
  1. COREG [Suspect]
     Indication: CARDIOMYOPATHY
     Dosage: 12.5MG TWICE PER DAY
     Route: 065
     Dates: start: 201108, end: 20130428
  2. XARELTO [Suspect]
     Indication: ATRIAL FIBRILLATION
     Dosage: 20MG PER DAY
     Route: 048
     Dates: start: 201211, end: 20130428
  3. CHLORTHALIDONE [Concomitant]
     Indication: HYPERTENSION
     Dosage: 25MG PER DAY
     Dates: start: 20130130
  4. LISINOPRIL [Concomitant]
     Indication: HYPERTENSION
     Dosage: 30MG PER DAY
     Dates: start: 2011
  5. ATORVASTATIN [Concomitant]
     Indication: DYSLIPIDAEMIA
     Dosage: 40MG PER DAY
     Dates: start: 20130130
  6. POTASSIUM CHLORIDE [Concomitant]
     Indication: HYPOKALAEMIA
     Dosage: 20MEQ PER DAY
     Dates: start: 20130228
  7. NIFEDIPINE [Concomitant]
     Indication: HYPERTENSION
     Dosage: 60MG PER DAY
     Dates: start: 20121213

REACTIONS (4)
  - Cerebrovascular accident [Fatal]
  - Cerebrovascular accident [Unknown]
  - Circulatory collapse [Unknown]
  - Unresponsive to stimuli [Unknown]
